FAERS Safety Report 20357400 (Version 6)
Quarter: 2023Q1

REPORT INFORMATION
  Report Type: Spontaneous
  Country: US (occurrence: US)
  Receive Date: 20220120
  Receipt Date: 20230316
  Transmission Date: 20230418
  Serious: Yes (Other)
  Sender: FDA-Public Use
  Company Number: US-PFIZER INC-202101440915

PATIENT
  Age: 91 Year
  Sex: Female

DRUGS (1)
  1. IBRANCE [Suspect]
     Active Substance: PALBOCICLIB
     Indication: Breast cancer female
     Dosage: 75 MG, CYCLIC (TAKE 1 TABLET ONCE DAILY ON DAYS 1 TO 21 OF 28 CYCLE)
     Route: 048

REACTIONS (3)
  - Deafness [Unknown]
  - Speech disorder [Unknown]
  - Aphasia [Unknown]
